FAERS Safety Report 7071818-4 (Version None)
Quarter: 2010Q4

REPORT INFORMATION
  Report Type: 
  Country: None (occurrence: None)
  Receive Date: 20101029
  Receipt Date: 20091026
  Transmission Date: 20110411
  Serious: No
  Sender: FDA-Public Use
  Company Number: A0813394A

PATIENT
  Sex: Male

DRUGS (10)
  1. ADVAIR DISKUS 100/50 [Suspect]
     Indication: CHRONIC OBSTRUCTIVE PULMONARY DISEASE
     Dosage: 1PUFF TWICE PER DAY
     Route: 055
     Dates: start: 20041001, end: 20071001
  2. ADVAIR DISKUS 100/50 [Suspect]
     Dosage: 2PUFF TWICE PER DAY
     Route: 055
     Dates: start: 20071001
  3. SPIRIVA [Concomitant]
  4. AMOXIL [Concomitant]
  5. AZITHROMYCIN [Concomitant]
  6. SULFA DRUG [Concomitant]
  7. PREDNISONE [Concomitant]
  8. OXYGEN [Concomitant]
  9. LISINOPRIL [Concomitant]
  10. METOPROLOL [Concomitant]

REACTIONS (1)
  - DYSPHONIA [None]
